FAERS Safety Report 6990452-5 (Version None)
Quarter: 2010Q3

REPORT INFORMATION
  Report Type: 
  Country: None (occurrence: None)
  Receive Date: 20100916
  Receipt Date: 20100702
  Transmission Date: 20110219
  Serious: Yes (Hospitalization)
  Sender: FDA-Public Use
  Company Number: FI-PFIZER INC-2010075625

PATIENT
  Age: 44 Year
  Sex: Female

DRUGS (11)
  1. LYRICA [Suspect]
     Indication: NEURALGIA
     Dosage: 75 MG, 1X/DAY
     Route: 048
     Dates: start: 20100414, end: 20100418
  2. LYRICA [Suspect]
     Dosage: 75 MG, 2X/DAY
     Route: 048
     Dates: start: 20100101, end: 20100101
  3. LYRICA [Suspect]
     Dosage: 450 MG, DAILY
     Route: 048
     Dates: start: 20100101, end: 20100101
  4. TRASTUZUMAB [Concomitant]
     Indication: BREAST CANCER METASTATIC
  5. ZOMETA [Concomitant]
     Indication: BREAST CANCER METASTATIC
  6. OXYCONTIN [Concomitant]
     Indication: PAIN
  7. OXYCODONE HCL [Concomitant]
     Indication: PAIN
  8. PANADOL [Concomitant]
     Indication: PAIN
  9. DEXAMETASON [Concomitant]
  10. OMEPRAZOLE [Concomitant]
     Dosage: UNK
  11. DIFLUCAN [Concomitant]
     Dosage: UNK
     Dates: start: 20100604

REACTIONS (3)
  - APHASIA [None]
  - EYE MOVEMENT DISORDER [None]
  - HYPOAESTHESIA [None]
